FAERS Safety Report 9186434 (Version 2)
Quarter: 2013Q2

REPORT INFORMATION
  Report Type: Spontaneous
  Country: US (occurrence: US)
  Receive Date: 20130325
  Receipt Date: 20130424
  Transmission Date: 20140414
  Serious: Yes (Other)
  Sender: FDA-Public Use
  Company Number: US-FRI-1000015952

PATIENT
  Age: 69 Year
  Sex: Female
  Weight: 64 kg

DRUGS (2)
  1. BYSTOLIC [Suspect]
     Indication: HYPERTENSION
     Dosage: 5 MG
     Route: 048
     Dates: start: 20100824
  2. SUPPLEMENTS [Concomitant]

REACTIONS (16)
  - Road traffic accident [Recovered/Resolved]
  - Headache [Recovered/Resolved]
  - Fatigue [Unknown]
  - Nausea [Unknown]
  - Oedema peripheral [Unknown]
  - Weight increased [Unknown]
  - Alopecia [Unknown]
  - Blood glucose increased [Unknown]
  - Muscle strain [Recovered/Resolved]
  - Rash [Recovered/Resolved]
  - Ligament sprain [Recovered/Resolved]
  - Blood fibrinogen increased [Unknown]
  - Contusion [Recovered/Resolved]
  - Cough [Recovered/Resolved]
  - Fall [Recovered/Resolved]
  - Head injury [Recovered/Resolved]
